FAERS Safety Report 6902838-5 (Version None)
Quarter: 2010Q3

REPORT INFORMATION
  Report Type: 
  Country: None (occurrence: None)
  Receive Date: 20100803
  Receipt Date: 20080609
  Transmission Date: 20110219
  Serious: No
  Sender: FDA-Public Use
  Company Number: US-PFIZER INC-2008049186

PATIENT
  Sex: Female
  Weight: 61.2 kg

DRUGS (4)
  1. LYRICA [Suspect]
     Indication: FIBROMYALGIA
     Dates: start: 20080101
  2. IBANDRONATE SODIUM [Concomitant]
  3. LEXAPRO [Concomitant]
  4. ASACOL [Concomitant]

REACTIONS (1)
  - WEIGHT INCREASED [None]
